FAERS Safety Report 7325841-2 (Version None)
Quarter: 2011Q1

REPORT INFORMATION
  Report Type: 
  Country: None (occurrence: None)
  Receive Date: 20110302
  Receipt Date: 20110216
  Transmission Date: 20110831
  Serious: Yes (Death, Hospitalization)
  Sender: FDA-Public Use
  Company Number: FR-JNJFOC-20110205417

PATIENT
  Sex: Female
  Weight: 72 kg

DRUGS (5)
  1. VELCADE [Suspect]
     Indication: MULTIPLE MYELOMA
     Route: 065
     Dates: start: 20101110, end: 20110114
  2. DEXAMETHASONE [Concomitant]
     Route: 048
     Dates: start: 20101110, end: 20110114
  3. BENDAMUSTINE [Concomitant]
     Route: 065
     Dates: start: 20101110, end: 20110114
  4. DURAGESIC-100 [Suspect]
     Indication: PAIN
     Route: 062
     Dates: start: 20101101, end: 20110119
  5. ROCEPHIN [Concomitant]
     Route: 065

REACTIONS (6)
  - DYSPNOEA [None]
  - HYPERTHERMIA [None]
  - SOMNOLENCE [None]
  - DRUG PRESCRIBING ERROR [None]
  - GENERAL PHYSICAL HEALTH DETERIORATION [None]
  - LUNG DISORDER [None]
